FAERS Safety Report 19603381 (Version 1)
Quarter: 2021Q3

REPORT INFORMATION
  Report Type: Report from Study
  Country: US (occurrence: US)
  Receive Date: 20210723
  Receipt Date: 20210723
  Transmission Date: 20211014
  Serious: No
  Sender: FDA-Public Use
  Company Number: US-GW PHARMA-202107USGW03571

PATIENT

DRUGS (3)
  1. EPIDIOLEX [Suspect]
     Active Substance: CANNABIDIOL
     Dosage: 460 MILLIGRAM, BID (STARTED AGAIN AFTER 4 MONTHS, GOT SICK IF TOOK FULL PRESCRIBED DOSE)
     Route: 048
     Dates: start: 202106, end: 202106
  2. EPIDIOLEX [Suspect]
     Active Substance: CANNABIDIOL
     Indication: PRODUCT USED FOR UNKNOWN INDICATION
     Dosage: 460 MILLIGRAM, BID
     Route: 048
     Dates: end: 2021
  3. EPIDIOLEX [Suspect]
     Active Substance: CANNABIDIOL
     Dosage: TOOK LESS THAN PRESCRIBED, UNK
     Route: 048
     Dates: start: 202106

REACTIONS (3)
  - Intentional product use issue [Unknown]
  - Product dose omission issue [Unknown]
  - Illness [Unknown]

NARRATIVE: CASE EVENT DATE: 202106
